FAERS Safety Report 19074056 (Version 1)
Quarter: 2021Q1

REPORT INFORMATION
  Report Type: Spontaneous
  Country: US (occurrence: US)
  Receive Date: 20210330
  Receipt Date: 20210330
  Transmission Date: 20210420
  Serious: Yes (Other)
  Sender: FDA-Public Use
  Company Number: US-STRIDES ARCOLAB LIMITED-2021SP000393

PATIENT
  Age: 60 Year
  Sex: Male

DRUGS (2)
  1. IVERMECTIN. [Suspect]
     Active Substance: IVERMECTIN
     Indication: STRONGYLOIDIASIS
     Dosage: UNK
     Route: 058
  2. ALBENDAZOLE. [Suspect]
     Active Substance: ALBENDAZOLE
     Indication: STRONGYLOIDIASIS
     Dosage: UNK
     Route: 065

REACTIONS (1)
  - Drug ineffective [Unknown]
